FAERS Safety Report 8598453-0 (Version None)
Quarter: 2012Q3

REPORT INFORMATION
  Report Type: 
  Country: None (occurrence: None)
  Receive Date: 20120816
  Receipt Date: 20120813
  Transmission Date: 20120928
  Serious: Yes (Other)
  Sender: FDA-Public Use
  Company Number: US-BAYER-2012-050086

PATIENT
  Age: 44 Year
  Sex: Female

DRUGS (4)
  1. PREDNISONE TAB [Concomitant]
  2. TYLENOL [Concomitant]
  3. BETASERON [Suspect]
     Indication: MULTIPLE SCLEROSIS
     Dosage: 8 MIU, QOD
     Route: 058
     Dates: start: 20120401
  4. HYDROCODONE [Concomitant]
     Indication: HEADACHE

REACTIONS (8)
  - NAUSEA [None]
  - MENISCUS LESION [None]
  - GASTROINTESTINAL PAIN [None]
  - MAMMOGRAM ABNORMAL [None]
  - JOINT CREPITATION [None]
  - FALL [None]
  - WEIGHT INCREASED [None]
  - BENIGN GASTROINTESTINAL NEOPLASM [None]
